FAERS Safety Report 16075017 (Version 2)
Quarter: 2019Q1

REPORT INFORMATION
  Report Type: Spontaneous
  Country: US (occurrence: US)
  Receive Date: 20190315
  Receipt Date: 20190326
  Transmission Date: 20190418
  Serious: Yes (Hospitalization, Other)
  Sender: FDA-Public Use
  Company Number: US-AMGEN-USASP2019037418

PATIENT
  Age: 66 Year
  Sex: Female
  Weight: 136.08 kg

DRUGS (5)
  1. NEUPOGEN [Suspect]
     Active Substance: FILGRASTIM
     Indication: PRODUCT USED FOR UNKNOWN INDICATION
     Dosage: UNK UNK, 2 TIMES/WK, ON EVERY WEDNESDAY AND THURSDAY
     Route: 065
  2. PROCRIT [Suspect]
     Active Substance: ERYTHROPOIETIN
     Indication: PRODUCT USED FOR UNKNOWN INDICATION
     Dosage: UNK UNK, 2 TIMES/WK ON EVERY WEDNESDAY AND THURSDAY
     Route: 042
  3. TORISEL [Suspect]
     Active Substance: TEMSIROLIMUS
     Indication: METASTASES TO LUNG
  4. TORISEL [Suspect]
     Active Substance: TEMSIROLIMUS
     Indication: METASTATIC UTERINE CANCER
     Dosage: UNK
     Route: 065
     Dates: start: 201812
  5. PROKINE [Concomitant]
     Dosage: UNK UNK, 2 TIMES/WK
     Route: 042

REACTIONS (11)
  - Diverticulitis [Unknown]
  - Colitis [Unknown]
  - Energy increased [Unknown]
  - Vulval abscess [Not Recovered/Not Resolved]
  - Viral infection [Not Recovered/Not Resolved]
  - Dry mouth [Unknown]
  - Hip fracture [Unknown]
  - Nasopharyngitis [Not Recovered/Not Resolved]
  - Insomnia [Unknown]
  - Platelet count decreased [Unknown]
  - Aphthous ulcer [Unknown]

NARRATIVE: CASE EVENT DATE: 201812
